FAERS Safety Report 6780094-9 (Version None)
Quarter: 2010Q2

REPORT INFORMATION
  Report Type: 
  Country: None (occurrence: None)
  Receive Date: 20100618
  Receipt Date: 20100610
  Transmission Date: 20101027
  Serious: Yes (Other)
  Sender: FDA-Public Use
  Company Number: US-PFIZER INC-2010073748

PATIENT
  Age: 77 Year
  Sex: Male

DRUGS (2)
  1. LIPITOR [Suspect]
     Indication: BLOOD CHOLESTEROL INCREASED
     Dosage: 20 MG, DAILY
     Route: 048
  2. ACETYLSALICYLIC ACID [Concomitant]
     Dosage: 80 MG, UNK

REACTIONS (3)
  - ARTHRALGIA [None]
  - HYPERTENSION [None]
  - PROSTATIC DISORDER [None]
